FAERS Safety Report 4293871-3 (Version None)
Quarter: 2004Q1

REPORT INFORMATION
  Report Type: 
  Country: None (occurrence: None)
  Receive Date: 20040211
  Receipt Date: 20040127
  Transmission Date: 20041129
  Serious: Yes (Other)
  Sender: FDA-Public Use
  Company Number: 2003IM001150

PATIENT
  Age: 44 Year
  Sex: Male

DRUGS (4)
  1. ADVAFERON (A643_INTERFERON ALFACON-1) [Suspect]
     Indication: HEPATITIS ACUTE
     Dosage: 12 MU;QD;SUBCUTANEOUS
     Route: 058
     Dates: start: 20031021, end: 20031027
  2. STRONG NEO-MINOPHAGEN C [Concomitant]
  3. FLAVINE ADENINE DINUCLEOTIDE [Concomitant]
  4. INSULIN HUMAN [Concomitant]

REACTIONS (7)
  - BLOOD GLUCOSE INCREASED [None]
  - CIRCULATORY COLLAPSE [None]
  - FALL [None]
  - LOSS OF CONSCIOUSNESS [None]
  - MEDICATION ERROR [None]
  - ORTHOSTATIC HYPOTENSION [None]
  - PYREXIA [None]
